FAERS Safety Report 16838741 (Version 1)
Quarter: 2019Q4

REPORT INFORMATION
  Report Type: Spontaneous
  Country: US (occurrence: US)
  Receive Date: 20190920
  Receipt Date: 20190920
  Transmission Date: 20200122
  Serious: Yes (Disabling)
  Sender: FDA-Public Use
  Company Number: None

PATIENT
  Age: 66 Year
  Sex: Female
  Weight: 58.5 kg

DRUGS (4)
  1. AMYTRIPTYLINE ONLY 1/4 PILL PER MONTH [Concomitant]
  2. PREDNISOLONE. [Suspect]
     Active Substance: PREDNISOLONE
     Indication: INFECTION PROPHYLAXIS
     Dates: start: 20161119, end: 20161219
  3. MULTIVITAMINS [Concomitant]
     Active Substance: VITAMINS
  4. VALERIAN [Concomitant]
     Active Substance: VALERIAN

REACTIONS (1)
  - Eyelid ptosis [None]

NARRATIVE: CASE EVENT DATE: 20161119
